FAERS Safety Report 9121143 (Version 1)
Quarter: 2013Q1

REPORT INFORMATION
  Report Type: Spontaneous
  Country: US (occurrence: US)
  Receive Date: 20130226
  Receipt Date: 20130226
  Transmission Date: 20140127
  Serious: No
  Sender: FDA-Public Use
  Company Number: US-ASTRAZENECA-2013SE10817

PATIENT
  Age: 46 Year
  Sex: Male
  Weight: 104.3 kg

DRUGS (3)
  1. BRILINTA [Suspect]
     Indication: STENT PLACEMENT
     Route: 048
     Dates: start: 20130131
  2. PLAVIX [Concomitant]
     Indication: STENT PLACEMENT
  3. ASPIRIN [Concomitant]

REACTIONS (2)
  - Erythema [Not Recovered/Not Resolved]
  - Swelling face [Not Recovered/Not Resolved]
